FAERS Safety Report 15083408 (Version 1)
Quarter: 2018Q2

REPORT INFORMATION
  Report Type: Spontaneous
  Country: US (occurrence: US)
  Receive Date: 20180628
  Receipt Date: 20180628
  Transmission Date: 20180711
  Serious: Yes (Other)
  Sender: FDA-Public Use
  Company Number: US-MYLANLABS-2018M1046015

PATIENT
  Age: 61 Year
  Sex: Female

DRUGS (3)
  1. FAMVIR [Concomitant]
     Active Substance: FAMCICLOVIR
     Indication: PROPHYLAXIS
     Route: 065
  2. VANCOMYCIN [Suspect]
     Active Substance: VANCOMYCIN
     Indication: ANTIBIOTIC PROPHYLAXIS
     Dosage: 1MG INJECTIONS IN BOTH EYES
     Route: 050
  3. BUDESONIDE. [Concomitant]
     Active Substance: BUDESONIDE
     Indication: PROPHYLAXIS
     Route: 065

REACTIONS (3)
  - Retinal vasculitis [Recovering/Resolving]
  - Retinal vascular occlusion [Recovering/Resolving]
  - Haemorrhagic vasculitis [Recovering/Resolving]
